FAERS Safety Report 5063011-1 (Version None)
Quarter: 2006Q3

REPORT INFORMATION
  Report Type: 
  Country: None (occurrence: None)
  Receive Date: 20060724
  Receipt Date: 20060710
  Transmission Date: 20061208
  Serious: Yes (Hospitalization, Other)
  Sender: FDA-Public Use
  Company Number: 2006072840

PATIENT
  Age: 77 Year
  Sex: Male

DRUGS (1)
  1. MACUGEN [Suspect]
     Indication: DRUG USE FOR UNKNOWN INDICATION
     Dates: start: 20060322

REACTIONS (3)
  - RENAL FAILURE [None]
  - SKIN DISCOLOURATION [None]
  - SKIN REACTION [None]
